FAERS Safety Report 5513632-4 (Version None)
Quarter: 2007Q4

REPORT INFORMATION
  Report Type: 
  Country: None (occurrence: None)
  Receive Date: 20071112
  Receipt Date: 20071105
  Transmission Date: 20080405
  Serious: Yes (Hospitalization)
  Sender: FDA-Public Use
  Company Number: IN-BOEHRINGER INGELHEIM PHARMACEUTICALS, INC.-2007-BP-23505SG

PATIENT
  Sex: Male
  Weight: 66 kg

DRUGS (3)
  1. TIOTROPIUM RESPIMAT [Suspect]
     Indication: CHRONIC OBSTRUCTIVE PULMONARY DISEASE
     Route: 055
     Dates: start: 20070402, end: 20071030
  2. FORACORT [Concomitant]
     Indication: CHRONIC OBSTRUCTIVE PULMONARY DISEASE
     Route: 055
     Dates: start: 20050601
  3. DERIPHYLLIN [Concomitant]
     Indication: CHRONIC OBSTRUCTIVE PULMONARY DISEASE
     Route: 048
     Dates: start: 20060101

REACTIONS (3)
  - BRONCHIECTASIS [None]
  - CHRONIC OBSTRUCTIVE PULMONARY DISEASE [None]
  - RESPIRATORY FAILURE [None]
